FAERS Safety Report 5533765-6 (Version None)
Quarter: 2007Q4

REPORT INFORMATION
  Report Type: 
  Country: None (occurrence: None)
  Receive Date: 20071204
  Receipt Date: 20071128
  Transmission Date: 20080405
  Serious: Yes (Other)
  Sender: FDA-Public Use
  Company Number: GB-BOEHRINGER INGELHEIM PHARMACEUTICALS, INC.-2007-DE-07029GD

PATIENT

DRUGS (3)
  1. ASPIRIN [Suspect]
     Indication: THROMBOSIS PROPHYLAXIS
  2. MELOXICAM [Suspect]
  3. DIPYRIDAMOLE [Suspect]
     Indication: THROMBOSIS PROPHYLAXIS

REACTIONS (1)
  - UPPER GASTROINTESTINAL HAEMORRHAGE [None]
